FAERS Safety Report 8227250-0 (Version None)
Quarter: 2012Q1

REPORT INFORMATION
  Report Type: 
  Country: None (occurrence: None)
  Receive Date: 20120322
  Receipt Date: 20120309
  Transmission Date: 20120608
  Serious: Yes (Hospitalization, Other)
  Sender: FDA-Public Use
  Company Number: JP-AMGEN-JPNSP2012006350

PATIENT
  Age: 75 Year
  Sex: Female

DRUGS (3)
  1. RHEUMATREX [Suspect]
     Dosage: UNK
     Dates: start: 20090101, end: 20110701
  2. ENBREL [Suspect]
     Indication: PRODUCT USED FOR UNKNOWN INDICATION
     Dosage: UNK
     Route: 058
     Dates: start: 20120101
  3. NEUTROGIN [Concomitant]
     Dosage: UNK

REACTIONS (1)
  - LEUKOPENIA [None]
